FAERS Safety Report 6138864-6 (Version None)
Quarter: 2009Q1

REPORT INFORMATION
  Report Type: 
  Country: None (occurrence: None)
  Receive Date: 20090331
  Receipt Date: 20090327
  Transmission Date: 20090719
  Serious: No
  Sender: FDA-Public Use
  Company Number: US-B.I. PHARMACEUTICALS,INC./RIDGEFIELD-2009-BP-03819BP

PATIENT
  Age: 76 Year
  Sex: Male

DRUGS (3)
  1. FLOMAX [Suspect]
     Indication: BENIGN PROSTATIC HYPERPLASIA
     Dosage: .4MG
     Route: 048
     Dates: start: 20081101, end: 20090301
  2. PLENDIL [Concomitant]
     Indication: HYPERTENSION
  3. ACEON [Concomitant]
     Indication: HYPERTENSION

REACTIONS (1)
  - VISUAL ACUITY REDUCED [None]
